FAERS Safety Report 9223645 (Version 1)
Quarter: 2013Q2

REPORT INFORMATION
  Report Type: Spontaneous
  Country: DE (occurrence: DE)
  Receive Date: 20130410
  Receipt Date: 20130410
  Transmission Date: 20140414
  Serious: Yes (Hospitalization, Congenital Anomaly, Other)
  Sender: FDA-Public Use
  Company Number: DE-GLAXOSMITHKLINE-D0079328A

PATIENT
  Age: 0 Year
  Sex: Male
  Weight: 3.4 kg

DRUGS (3)
  1. LAMOTRIGINE [Suspect]
     Indication: EPILEPSY
     Dosage: 275MG PER DAY
     Route: 064
  2. VALPROIC ACID [Suspect]
     Indication: EPILEPSY
     Dosage: 300MG TWICE PER DAY
     Route: 064
  3. FOLIC ACID [Concomitant]
     Indication: PROPHYLAXIS OF NEURAL TUBE DEFECT
     Dosage: .4MG PER DAY
     Route: 064

REACTIONS (5)
  - Aplasia cutis congenita [Not Recovered/Not Resolved]
  - Transient tachypnoea of the newborn [Recovered/Resolved]
  - Conjunctivitis bacterial [Unknown]
  - Foetal exposure during pregnancy [Unknown]
  - Exposure during breast feeding [Unknown]
